FAERS Safety Report 10243992 (Version 1)
Quarter: 2014Q2

REPORT INFORMATION
  Report Type: Spontaneous
  Country: US (occurrence: US)
  Receive Date: 20140618
  Receipt Date: 20140618
  Transmission Date: 20141212
  Serious: Yes (Hospitalization, Other)
  Sender: FDA-Public Use
  Company Number: CHPA2014US008012

PATIENT
  Age: 87 Year
  Sex: Female

DRUGS (5)
  1. BENEFIBER W/ WHEAT DEXTRIN [Suspect]
     Indication: CONSTIPATION
     Dosage: 2 TSP, TID
     Route: 048
  2. BENEFIBER W/ WHEAT DEXTRIN [Suspect]
     Indication: DIARRHOEA
  3. BENEFIBER W/ WHEAT DEXTRIN [Suspect]
     Indication: OFF LABEL USE
  4. BENEFIBER W/ WHEAT DEXTRIN [Suspect]
  5. SENNA [Suspect]
     Indication: CONSTIPATION
     Dosage: 2 DF, UNK

REACTIONS (13)
  - Rib fracture [Recovering/Resolving]
  - Road traffic accident [Unknown]
  - Haemorrhoids [Unknown]
  - Abdominal distension [Not Recovered/Not Resolved]
  - Dyspepsia [Not Recovered/Not Resolved]
  - Decreased appetite [Unknown]
  - Insomnia [Unknown]
  - Pain [Unknown]
  - Constipation [Not Recovered/Not Resolved]
  - Diarrhoea [Unknown]
  - Abdominal pain upper [Not Recovered/Not Resolved]
  - Therapeutic response changed [Unknown]
  - Drug ineffective for unapproved indication [Unknown]
